FAERS Safety Report 10019708 (Version 1)
Quarter: 2014Q1

REPORT INFORMATION
  Report Type: Spontaneous
  Country: US (occurrence: US)
  Receive Date: 20140318
  Receipt Date: 20140318
  Transmission Date: 20141002
  Serious: No
  Sender: FDA-Public Use
  Company Number: US-GALDERMA-US14000592

PATIENT
  Age: 53 Year
  Sex: Female

DRUGS (8)
  1. MIRVASO (BRIMONIDINE) TOPICAL GEL, 0.33% [Suspect]
     Indication: ROSACEA
     Dosage: 0.33%
     Route: 061
     Dates: start: 201402, end: 201402
  2. MIRVASO (BRIMONIDINE) TOPICAL GEL, 0.33% [Suspect]
     Route: 061
     Dates: start: 201402, end: 201402
  3. ORACEA (DOXYCYCLINE, USP) CAPSULES 40 MG [Concomitant]
     Indication: ROSACEA
     Dosage: 40 MG
     Route: 048
     Dates: start: 2012
  4. CETAPHIL GENTLE CLEANSING BAR [Concomitant]
     Indication: THERAPEUTIC SKIN CARE TOPICAL
     Route: 061
     Dates: start: 2008
  5. CETAPHIL DAILY FACIAL MOISTURIZER SPF15 [Concomitant]
     Indication: DRY SKIN PROPHYLAXIS
     Route: 061
  6. NIOXIN MOISTURIZER [Concomitant]
     Indication: DRY SKIN PROPHYLAXIS
     Route: 061
     Dates: start: 2009
  7. MAC STUDIO FIX POWDER [Concomitant]
     Route: 061
  8. BIRTH CONTROL [Concomitant]
     Route: 048

REACTIONS (5)
  - Condition aggravated [Recovering/Resolving]
  - Skin exfoliation [Unknown]
  - Dry skin [Recovering/Resolving]
  - Skin burning sensation [Recovering/Resolving]
  - Off label use [Recovered/Resolved]
